FAERS Safety Report 4993220-9 (Version None)
Quarter: 2006Q1

REPORT INFORMATION
  Report Type: 
  Country: None (occurrence: None)
  Receive Date: 20060314
  Receipt Date: 20051216
  Transmission Date: 20060701
  Serious: Yes (Life-Threatening)
  Sender: FDA-Public Use
  Company Number: BDI-007802

PATIENT
  Age: 22 Year
  Sex: Male
  Weight: 100 kg

DRUGS (9)
  1. MULTIHANCE [Suspect]
     Indication: MYOCARDITIS
     Dosage: 15 ML ONCE IV
     Route: 042
     Dates: start: 20051212, end: 20051212
  2. MULTIHANCE [Suspect]
     Indication: NUCLEAR MAGNETIC RESONANCE IMAGING
     Dosage: 15 ML ONCE IV
     Route: 042
     Dates: start: 20051212, end: 20051212
  3. MULTIHANCE [Suspect]
     Indication: PERICARDITIS
     Dosage: 15 ML ONCE IV
     Route: 042
     Dates: start: 20051212, end: 20051212
  4. MULTIHANCE [Suspect]
     Indication: TROPONIN INCREASED
     Dosage: 15 ML ONCE IV
     Route: 042
     Dates: start: 20051212, end: 20051212
  5. MULTIHANCE [Suspect]
     Indication: MYOCARDITIS
     Dosage: 30 ML ONCE IV
     Route: 042
     Dates: start: 20051212, end: 20051212
  6. MULTIHANCE [Suspect]
     Indication: NUCLEAR MAGNETIC RESONANCE IMAGING
     Dosage: 30 ML ONCE IV
     Route: 042
     Dates: start: 20051212, end: 20051212
  7. MULTIHANCE [Suspect]
     Indication: PERICARDITIS
     Dosage: 30 ML ONCE IV
     Route: 042
     Dates: start: 20051212, end: 20051212
  8. MULTIHANCE [Suspect]
     Indication: TROPONIN INCREASED
     Dosage: 30 ML ONCE IV
     Route: 042
     Dates: start: 20051212, end: 20051212
  9. TOPROL-XL [Concomitant]

REACTIONS (1)
  - ANAPHYLACTOID REACTION [None]
